FAERS Safety Report 10723155 (Version 2)
Quarter: 2015Q1

REPORT INFORMATION
  Report Type: Spontaneous
  Country: US (occurrence: US)
  Receive Date: 20150120
  Receipt Date: 20150203
  Transmission Date: 20150721
  Serious: No
  Sender: FDA-Public Use
  Company Number: US-TEVA-534740USA

PATIENT
  Age: 42 Year
  Sex: Female
  Weight: 61.29 kg

DRUGS (1)
  1. JOLESSA [Suspect]
     Active Substance: ETHINYL ESTRADIOL\LEVONORGESTREL
     Indication: PREMENSTRUAL SYNDROME
     Dates: end: 20150126

REACTIONS (6)
  - Feeling abnormal [Not Recovered/Not Resolved]
  - Metrorrhagia [Not Recovered/Not Resolved]
  - Malaise [Not Recovered/Not Resolved]
  - Menorrhagia [Not Recovered/Not Resolved]
  - Intentional product use issue [Unknown]
  - Menorrhagia [Not Recovered/Not Resolved]

NARRATIVE: CASE EVENT DATE: 201412
